FAERS Safety Report 5652419-9 (Version None)
Quarter: 2008Q1

REPORT INFORMATION
  Report Type: 
  Country: None (occurrence: None)
  Receive Date: 20080305
  Receipt Date: 20080305
  Transmission Date: 20080703
  Serious: Yes (Other)
  Sender: FDA-Public Use
  Company Number: None

PATIENT
  Sex: Female
  Weight: 99.7913 kg

DRUGS (1)
  1. LYRICA [Suspect]
     Indication: FIBROMYALGIA
     Dosage: 2 PILLS AT BEDTIME PO
     Route: 048
     Dates: start: 20071225, end: 20071228

REACTIONS (5)
  - DYSPHAGIA [None]
  - GLOSSODYNIA [None]
  - SPEECH DISORDER [None]
  - SWOLLEN TONGUE [None]
  - TONGUE DISORDER [None]
